FAERS Safety Report 8888759 (Version 3)
Quarter: 2015Q2

REPORT INFORMATION
  Report Type: Spontaneous
  Country: US (occurrence: US)
  Receive Date: 20121106
  Receipt Date: 20150515
  Transmission Date: 20150821
  Serious: Yes (Hospitalization)
  Sender: FDA-Public Use
  Company Number: US-ASTRAZENECA-2012SE82101

PATIENT
  Age: 92 Year
  Sex: Male
  Weight: 71.2 kg

DRUGS (5)
  1. ASPIRIN. [Suspect]
     Active Substance: ASPIRIN
     Route: 065
     Dates: end: 2013
  2. TOPROL XL [Suspect]
     Active Substance: METOPROLOL SUCCINATE
     Indication: MYOCARDIAL INFARCTION
     Route: 048
     Dates: start: 2002, end: 2015
  3. VITAMIN [Concomitant]
     Active Substance: VITAMINS
     Dosage: DAILY
     Route: 065
  4. TOPROL XL [Suspect]
     Active Substance: METOPROLOL SUCCINATE
     Indication: MYOCARDIAL INFARCTION
     Route: 048
  5. METOPROLOL [Suspect]
     Active Substance: METOPROLOL
     Route: 065
     Dates: start: 201503

REACTIONS (7)
  - Heart rate irregular [Unknown]
  - Fatigue [Unknown]
  - Ulcer haemorrhage [Unknown]
  - Mental impairment [Unknown]
  - Asthenia [Unknown]
  - Ocular discomfort [Unknown]
  - Activities of daily living impaired [Unknown]

NARRATIVE: CASE EVENT DATE: 2013
